FAERS Safety Report 19439287 (Version 1)
Quarter: 2021Q2

REPORT INFORMATION
  Report Type: Report from Study
  Country: JP (occurrence: JP)
  Receive Date: 20210619
  Receipt Date: 20210619
  Transmission Date: 20210717
  Serious: Yes (Other)
  Sender: FDA-Public Use
  Company Number: JP-ACCORD-226628

PATIENT
  Age: 25 Month
  Sex: Male

DRUGS (2)
  1. GEMCITABINE/GEMCITABINE HYDROCHLORIDE [Suspect]
     Active Substance: GEMCITABINE\GEMCITABINE HYDROCHLORIDE
     Indication: RHABDOID TUMOUR
     Dosage: 900MG/M2 ON DAY 1 AND DAY 8 (5 COURSES)
  2. DOCETAXEL. [Suspect]
     Active Substance: DOCETAXEL
     Indication: RHABDOID TUMOUR
     Dosage: ON DAY 8 (5 COURSES)

REACTIONS (3)
  - Pleural effusion [Unknown]
  - Haematotoxicity [Unknown]
  - Face oedema [Unknown]
